FAERS Safety Report 15417659 (Version 1)
Quarter: 2018Q3

REPORT INFORMATION
  Report Type: Report from Study
  Country: PH (occurrence: PH)
  Receive Date: 20180924
  Receipt Date: 20180924
  Transmission Date: 20181010
  Serious: Yes (Death, Hospitalization)
  Sender: FDA-Public Use
  Company Number: PHHY2018PH098142

PATIENT
  Age: 44 Year
  Sex: Male

DRUGS (1)
  1. TASIGNA [Suspect]
     Active Substance: NILOTINIB
     Indication: CHRONIC MYELOID LEUKAEMIA
     Dosage: 600 MG, QID
     Route: 048
     Dates: start: 20171002, end: 20180620

REACTIONS (4)
  - Liver disorder [Unknown]
  - Sepsis [Fatal]
  - Kidney infection [Unknown]
  - Headache [Unknown]

NARRATIVE: CASE EVENT DATE: 201806
